FAERS Safety Report 9925517 (Version 1)
Quarter: 2014Q1

REPORT INFORMATION
  Report Type: Spontaneous
  Country: US (occurrence: None)
  Receive Date: 20140225
  Receipt Date: 20140225
  Transmission Date: 20141002
  Serious: Yes (Hospitalization)
  Sender: FDA-Public Use
  Company Number: None

PATIENT
  Age: 60 Year
  Sex: Male
  Weight: 67.1 kg

DRUGS (9)
  1. ABRAXANE [Suspect]
  2. ACETAMINOPHEN (TYLENOL) [Concomitant]
  3. LACTOBACILLUS ACIDOPHILUS (ACIDOPHILUS ORAL) [Concomitant]
  4. LANSOPRAZOLE (PREVACID) [Concomitant]
  5. METOCLOPRAMIDE HCL (REGLAN) [Concomitant]
  6. ONDANSETRON (ZOFRAN) [Concomitant]
  7. OXYCODONE HCL/ACETAMINOPHEN (PERCOCET ORAL) [Concomitant]
  8. PROCHLORPERAZINE (COMPAZINE) [Concomitant]
  9. PSYLLIUM SEED (WITH DEXTROSE) (FIBER ORAL) [Concomitant]

REACTIONS (2)
  - Dehydration [None]
  - Clostridium difficile infection [None]
